FAERS Safety Report 7686630-2 (Version None)
Quarter: 2011Q3

REPORT INFORMATION
  Report Type: 
  Country: None (occurrence: None)
  Receive Date: 20110816
  Receipt Date: 20110816
  Transmission Date: 20111222
  Serious: Yes (Other)
  Sender: FDA-Public Use
  Company Number: None

PATIENT
  Age: 39 Year
  Sex: Male
  Weight: 72.574 kg

DRUGS (1)
  1. ROPINIROLE [Suspect]
     Indication: RESTLESS LEGS SYNDROME
     Dosage: 0.50 MG
     Route: 048
     Dates: start: 20110517, end: 20110809

REACTIONS (6)
  - FLATULENCE [None]
  - ABDOMINAL PAIN [None]
  - NAUSEA [None]
  - SLEEP DISORDER [None]
  - EATING DISORDER [None]
  - RETCHING [None]
